FAERS Safety Report 8097325-8 (Version None)
Quarter: 2012Q1

REPORT INFORMATION
  Report Type: 
  Country: None (occurrence: None)
  Receive Date: 20120128
  Receipt Date: 20110715
  Transmission Date: 20120608
  Serious: No
  Sender: FDA-Public Use
  Company Number: US-ABBOTT-11P-163-0839535-00

PATIENT
  Age: 41 Year
  Sex: Male

DRUGS (3)
  1. HUMIRA [Suspect]
     Dates: start: 20110224
  2. UNKNOWN MEDICATION [Concomitant]
     Indication: ASTHMA
     Dosage: DOESN'T REALLY USE THEM
  3. HUMIRA [Suspect]
     Indication: PSORIATIC ARTHROPATHY
     Dates: start: 20091101

REACTIONS (3)
  - RASH [None]
  - PAIN [None]
  - PSORIASIS [None]
